FAERS Safety Report 25262104 (Version 1)
Quarter: 2025Q2

REPORT INFORMATION
  Report Type: Spontaneous
  Country: US (occurrence: US)
  Receive Date: 20250502
  Receipt Date: 20250502
  Transmission Date: 20250717
  Serious: No
  Sender: LUPIN
  Company Number: US-LUPIN PHARMACEUTICALS INC.-2025-03630

PATIENT
  Age: 60 Year
  Weight: 63.492 kg

DRUGS (2)
  1. PREDNISOLONE ACETATE [Suspect]
     Active Substance: PREDNISOLONE ACETATE
     Indication: Inflammation
     Dosage: 1 DROP, QD
  2. LIPITOR [Concomitant]
     Active Substance: ATORVASTATIN CALCIUM
     Indication: Blood cholesterol abnormal
     Route: 065

REACTIONS (4)
  - Ocular discomfort [Unknown]
  - Device delivery system issue [Unknown]
  - Drug ineffective [Unknown]
  - Device occlusion [Unknown]
